FAERS Safety Report 17729083 (Version 1)
Quarter: 2020Q2

REPORT INFORMATION
  Report Type: Spontaneous
  Country: US (occurrence: US)
  Receive Date: 20200430
  Receipt Date: 20200430
  Transmission Date: 20200714
  Serious: Yes (Disabling)
  Sender: FDA-Public Use
  Company Number: None

PATIENT
  Age: 56 Year
  Sex: Female
  Weight: 58.5 kg

DRUGS (3)
  1. LACRISERT [Suspect]
     Active Substance: HYDROXYPROPYL CELLULOSE
     Indication: DRY EYE
     Dosage: ?          QUANTITY:2 2/DAY;?
     Route: 047
     Dates: start: 20100501, end: 20200316
  2. LACRISERT [Suspect]
     Active Substance: HYDROXYPROPYL CELLULOSE
     Indication: AUTOIMMUNE DISORDER
     Dosage: ?          QUANTITY:2 2/DAY;?
     Route: 047
     Dates: start: 20100501, end: 20200316
  3. PLAQUNIL [Concomitant]

REACTIONS (3)
  - Product supply issue [None]
  - Eye pain [None]
  - Impaired driving ability [None]

NARRATIVE: CASE EVENT DATE: 20200101
